FAERS Safety Report 6448903-0 (Version None)
Quarter: 2009Q4

REPORT INFORMATION
  Report Type: 
  Country: None (occurrence: None)
  Receive Date: 20091120
  Receipt Date: 20091112
  Transmission Date: 20100525
  Serious: Yes (Hospitalization)
  Sender: FDA-Public Use
  Company Number: FR-JNJFOC-20091104399

PATIENT
  Age: 64 Year
  Sex: Female

DRUGS (5)
  1. REMICADE [Suspect]
     Route: 042
     Dates: start: 20090515, end: 20090913
  2. REMICADE [Suspect]
     Route: 042
     Dates: start: 20090515, end: 20090913
  3. REMICADE [Suspect]
     Route: 042
     Dates: start: 20090515, end: 20090913
  4. REMICADE [Suspect]
     Indication: PSORIASIS
     Route: 042
     Dates: start: 20090515, end: 20090913
  5. HUMIRA [Suspect]
     Indication: PSORIASIS
     Route: 058

REACTIONS (3)
  - DRUG INEFFECTIVE [None]
  - ECZEMA [None]
  - PUSTULAR PSORIASIS [None]
